FAERS Safety Report 10404464 (Version 1)
Quarter: 2014Q1

REPORT INFORMATION
  Report Type: Spontaneous
  Country: US (occurrence: None)
  Receive Date: 20140306
  Receipt Date: 20140306
  Transmission Date: 20141002
  Serious: Yes (Hospitalization, Other)
  Sender: FDA-Public Use
  Company Number: 163-21880-12122911

PATIENT
  Age: 59 Year
  Sex: Male

DRUGS (5)
  1. REVLIMID (LENALIDOMIDE) (25 MILLIGRAM, CAPSULES) [Suspect]
     Route: 048
     Dates: start: 200811
  2. LEVEMIR (DETEMIR) [Concomitant]
  3. METFORMIN [Concomitant]
  4. VANCOMYCIN [Concomitant]
  5. NEPHROTOXIC DRUGS [Concomitant]

REACTIONS (5)
  - Pneumonia streptococcal [None]
  - Renal failure [None]
  - Electrolyte imbalance [None]
  - Bacteraemia [None]
  - Hyperglycaemia [None]
